FAERS Safety Report 13814455 (Version 1)
Quarter: 2017Q3

REPORT INFORMATION
  Report Type: Spontaneous
  Country: US (occurrence: US)
  Receive Date: 20170731
  Receipt Date: 20170731
  Transmission Date: 20171127
  Serious: No
  Sender: FDA-Public Use
  Company Number: US-APOTEX-2017AP013882

PATIENT
  Age: 62 Year
  Sex: Female

DRUGS (3)
  1. ROPINIROLE. [Suspect]
     Active Substance: ROPINIROLE
     Indication: PARKINSON^S DISEASE
     Dosage: 3 MG, TID
     Route: 065
  2. CARBIDOPA AND LEVODOPA [Suspect]
     Active Substance: CARBIDOPA\LEVODOPA
     Indication: PARKINSON^S DISEASE
     Dosage: 1.5 DF, UNK, 25MG/100MG, EVERY 4 HOURS
     Route: 065
  3. ENTACAPONE. [Suspect]
     Active Substance: ENTACAPONE
     Indication: PARKINSON^S DISEASE
     Dosage: 1 DF, UNK
     Route: 065

REACTIONS (6)
  - Insomnia [Unknown]
  - Pain [Recovering/Resolving]
  - Drug interaction [Unknown]
  - Increased appetite [Unknown]
  - Dyskinesia [Unknown]
  - Somnolence [Unknown]
